FAERS Safety Report 13710602 (Version 1)
Quarter: 2017Q2

REPORT INFORMATION
  Report Type: Spontaneous
  Country: US (occurrence: US)
  Receive Date: 20170630
  Receipt Date: 20170630
  Transmission Date: 20170830
  Serious: No
  Sender: FDA-Public Use
  Company Number: None

PATIENT
  Age: 65 Year
  Sex: Male
  Weight: 72 kg

DRUGS (1)
  1. NEW RIGHT GUARD SPORT, THE DIAL CORPORATION [Suspect]
     Active Substance: ALUMINUM ZIRCONIUM TRICHLOROHYDREX GLY
     Indication: PRODUCT USED FOR UNKNOWN INDICATION
     Dosage: OTHER STRENGTH:OUNCE;QUANTITY:1 APPLICATION;?
     Route: 061
     Dates: start: 20170629, end: 20170630

REACTIONS (1)
  - Pruritus [None]

NARRATIVE: CASE EVENT DATE: 20170629
